FAERS Safety Report 22609801 (Version 1)
Quarter: 2023Q2

REPORT INFORMATION
  Report Type: Spontaneous
  Country: US (occurrence: None)
  Receive Date: 20230615
  Receipt Date: 20230615
  Transmission Date: 20230722
  Serious: No
  Sender: FDA-Public Use
  Company Number: None

PATIENT
  Age: 73 Year
  Sex: Female

DRUGS (4)
  1. PIQRAY [Suspect]
     Active Substance: ALPELISIB
     Indication: Malignant nipple neoplasm female
  2. LETROZOLE [Concomitant]
     Active Substance: LETROZOLE
  3. MAGNESIUM [Concomitant]
     Active Substance: MAGNESIUM
  4. FOLIC ACID [Concomitant]
     Active Substance: FOLIC ACID

REACTIONS (6)
  - Lip swelling [None]
  - Swelling face [None]
  - Lip pruritus [None]
  - Hypersensitivity [None]
  - Therapy cessation [None]
  - Blood glucose abnormal [None]

NARRATIVE: CASE EVENT DATE: 20230614
